FAERS Safety Report 6532880-8 (Version None)
Quarter: 2010Q1

REPORT INFORMATION
  Report Type: 
  Country: None (occurrence: None)
  Receive Date: 20100111
  Receipt Date: 20091229
  Transmission Date: 20100710
  Serious: Yes (Hospitalization)
  Sender: FDA-Public Use
  Company Number: IT-BAYER-201010713GPV

PATIENT
  Age: 71 Year
  Sex: Male

DRUGS (5)
  1. NEXAVAR [Suspect]
     Indication: HEPATIC CANCER METASTATIC
     Dosage: TOTAL DAILY DOSE: 800 MG
     Route: 048
     Dates: start: 20091210, end: 20091212
  2. LANSOX [Concomitant]
     Route: 048
  3. TRIATEC [Concomitant]
     Route: 048
  4. ALDACTONE [Concomitant]
     Route: 048
  5. DILATREND [Concomitant]
     Route: 048

REACTIONS (4)
  - BLOOD LACTATE DEHYDROGENASE INCREASED [None]
  - HYPERPYREXIA [None]
  - INFECTION [None]
  - TRANSAMINASES INCREASED [None]
